FAERS Safety Report 16599189 (Version 2)
Quarter: 2022Q2

REPORT INFORMATION
  Report Type: Spontaneous
  Country: IT (occurrence: IT)
  Receive Date: 20190719
  Receipt Date: 20220621
  Transmission Date: 20220720
  Serious: Yes (Hospitalization, Other)
  Sender: FDA-Public Use
  Company Number: PHHY2019IT164358

PATIENT
  Age: 17 Year
  Sex: Female

DRUGS (6)
  1. CIPROFLOXACIN [Suspect]
     Active Substance: CIPROFLOXACIN
     Indication: Pseudomonas infection
     Dosage: UNK
     Route: 065
  2. CIPROFLOXACIN [Suspect]
     Active Substance: CIPROFLOXACIN
     Dosage: 400 MG, Q12H
     Route: 065
     Dates: start: 20190102, end: 20190201
  3. COLISTIN [Suspect]
     Active Substance: COLISTIN
     Indication: Intracranial infection
     Dosage: UNK
     Route: 037
     Dates: start: 20181202, end: 20181222
  4. COLISTIN [Suspect]
     Active Substance: COLISTIN
     Dosage: UNK
     Route: 037
     Dates: start: 20190102, end: 20190201
  5. CEFTOLOZANE SULFATE\TAZOBACTAM SODIUM [Suspect]
     Active Substance: CEFTOLOZANE SULFATE\TAZOBACTAM SODIUM
     Indication: Intracranial infection
     Dosage: 3 GRAM, Q8H
     Route: 065
     Dates: start: 20181202, end: 20181222
  6. CEFTOLOZANE SULFATE\TAZOBACTAM SODIUM [Suspect]
     Active Substance: CEFTOLOZANE SULFATE\TAZOBACTAM SODIUM
     Dosage: UNK
     Route: 037
     Dates: start: 20190102, end: 20190201

REACTIONS (5)
  - Wound secretion [Recovering/Resolving]
  - Dehiscence [Recovering/Resolving]
  - Pseudomonas infection [Recovering/Resolving]
  - Osteomyelitis [Recovering/Resolving]
  - Off label use [Unknown]

NARRATIVE: CASE EVENT DATE: 20181201
